FAERS Safety Report 9381420 (Version 1)
Quarter: 2013Q3

REPORT INFORMATION
  Report Type: Spontaneous
  Country: DE (occurrence: DE)
  Receive Date: 20130703
  Receipt Date: 20130703
  Transmission Date: 20140515
  Serious: Yes (Other)
  Sender: FDA-Public Use
  Company Number: PHHY2013DE067424

PATIENT
  Sex: Female

DRUGS (5)
  1. SANDOSTATIN LAR [Suspect]
     Indication: NEUROENDOCRINE TUMOUR
     Dosage: 20 MG, QMO
     Dates: start: 201201
  2. ATACAND [Concomitant]
     Indication: HYPERTENSION
     Dosage: UNK UKN, UNK
  3. AMILORID [Concomitant]
     Indication: HYPERTENSION
     Dosage: UNK UKN, UNK
  4. EBRANTIL [Concomitant]
     Indication: HYPERTENSION
     Dosage: UNK UKN, UNK
  5. PANTOPRAZOLE SODIUM SESQUIHYDRATE [Concomitant]
     Indication: ABDOMINAL DISCOMFORT
     Dosage: UNK UKN, UNK

REACTIONS (5)
  - Blindness [Not Recovered/Not Resolved]
  - Rash generalised [Not Recovered/Not Resolved]
  - Synovitis [Not Recovered/Not Resolved]
  - Arthralgia [Not Recovered/Not Resolved]
  - Pain in extremity [Not Recovered/Not Resolved]
